FAERS Safety Report 8909229 (Version 1)
Quarter: 2012Q4

REPORT INFORMATION
  Report Type: Spontaneous
  Country: DK (occurrence: None)
  Receive Date: 20121107
  Receipt Date: 20121107
  Transmission Date: 20130627
  Serious: Yes (Other)
  Sender: FDA-Public Use
  Company Number: 2012MA013055

PATIENT
  Sex: Female

DRUGS (6)
  1. ACETAMINOPHEN + CODEINE PHOSPHATE [Suspect]
  2. DISOPYRAMIDE [Concomitant]
  3. MULTIVITAMIN [Concomitant]
  4. OMEGA-3 ACIDS [Concomitant]
  5. MOVICOL [Concomitant]
  6. PARACETAMOL [Concomitant]

REACTIONS (13)
  - Malaise [None]
  - Insomnia [None]
  - Drug dependence [None]
  - Dyspnoea [None]
  - Dizziness [None]
  - Urinary retention [None]
  - Constipation [None]
  - Headache [None]
  - Nausea [None]
  - Confusional state [None]
  - Withdrawal syndrome [None]
  - Agitation [None]
  - Vitamin D decreased [None]
